FAERS Safety Report 17719075 (Version 2)
Quarter: 2020Q2

REPORT INFORMATION
  Report Type: Spontaneous
  Country: US (occurrence: US)
  Receive Date: 20200428
  Receipt Date: 20200613
  Transmission Date: 20200714
  Serious: No
  Sender: FDA-Public Use
  Company Number: US-ASTRAZENECA-2020SE55431

PATIENT
  Age: 641 Month
  Sex: Male

DRUGS (1)
  1. SYMBICORT [Suspect]
     Active Substance: BUDESONIDE\FORMOTEROL FUMARATE DIHYDRATE
     Dosage: 160/4.5 MCG,UNKNOWN UNKNOWN
     Route: 055
     Dates: start: 2020

REACTIONS (3)
  - Intentional device misuse [Unknown]
  - Device issue [Unknown]
  - Visual impairment [Unknown]

NARRATIVE: CASE EVENT DATE: 202004
